FAERS Safety Report 4479203-6 (Version None)
Quarter: 2004Q4

REPORT INFORMATION
  Report Type: 
  Country: None (occurrence: None)
  Receive Date: 20041019
  Receipt Date: 20041019
  Transmission Date: 20050328
  Serious: No
  Sender: FDA-Public Use
  Company Number: None

PATIENT
  Sex: Female

DRUGS (2)
  1. PAXIL [Suspect]
  2. PROZAC [Suspect]

REACTIONS (24)
  - AGITATION [None]
  - ANAPHYLACTIC SHOCK [None]
  - ANTISOCIAL BEHAVIOUR [None]
  - CONSTIPATION [None]
  - DRUG WITHDRAWAL SYNDROME [None]
  - DYSPNOEA [None]
  - FAECALOMA [None]
  - FEELING ABNORMAL [None]
  - HEADACHE [None]
  - HEPATIC NEOPLASM MALIGNANT [None]
  - INFLUENZA [None]
  - INSOMNIA [None]
  - NIGHTMARE [None]
  - PANCREATIC CARCINOMA [None]
  - PANCREATITIS [None]
  - RESTLESSNESS [None]
  - SCAR [None]
  - SEDATION [None]
  - SKIN CANCER [None]
  - SKIN LESION [None]
  - SOMNOLENCE [None]
  - TONGUE DISORDER [None]
  - TREMOR [None]
  - WEIGHT INCREASED [None]
